FAERS Safety Report 17905541 (Version 1)
Quarter: 2020Q2

REPORT INFORMATION
  Report Type: Report from Study
  Country: CA (occurrence: CA)
  Receive Date: 20200616
  Receipt Date: 20200616
  Transmission Date: 20200714
  Serious: Yes (Other)
  Sender: FDA-Public Use
  Company Number: PHHY2017CA099015

PATIENT
  Age: 62 Year
  Sex: Male

DRUGS (9)
  1. TRAZODONE [Concomitant]
     Active Substance: TRAZODONE HYDROCHLORIDE
     Indication: SLEEP DISORDER
     Dosage: 50 MG, QD
     Route: 065
     Dates: start: 20180302
  2. SANDOSTATIN [Suspect]
     Active Substance: OCTREOTIDE ACETATE
     Dosage: UNK
     Route: 058
     Dates: start: 20170807, end: 201708
  3. ROSUVASTATIN. [Concomitant]
     Active Substance: ROSUVASTATIN
     Indication: BLOOD PRESSURE INCREASED
     Dosage: 10 MG, QD (DAILY)
     Route: 065
     Dates: start: 20180314
  4. TRAZODONE [Concomitant]
     Active Substance: TRAZODONE HYDROCHLORIDE
     Dosage: 50 MG, QHS (AT BEDTIME)
     Route: 065
     Dates: start: 20180314
  5. SANDOSTATIN [Suspect]
     Active Substance: OCTREOTIDE ACETATE
     Indication: CARCINOID TUMOUR
     Dosage: UNK (TEST DOSE)
     Route: 058
     Dates: start: 20170629, end: 20170629
  6. AMLODIPINE [Concomitant]
     Active Substance: AMLODIPINE BESYLATE
     Indication: BLOOD PRESSURE INCREASED
     Dosage: 5 MG, QD (DAILY)
     Route: 065
     Dates: start: 20180314
  7. COVERSYL [Concomitant]
     Active Substance: PERINDOPRIL
     Indication: BLOOD PRESSURE INCREASED
     Dosage: 4 MG, QD
     Route: 065
     Dates: start: 20180222
  8. COVERSYL [Concomitant]
     Active Substance: PERINDOPRIL
     Dosage: 8 MG, QD (DAILY)
     Route: 065
     Dates: start: 20180302
  9. SANDOSTATIN LAR DEPOT [Suspect]
     Active Substance: OCTREOTIDE ACETATE
     Indication: CARCINOID TUMOUR
     Dosage: 30 MG, QMO (EVERY 4 WEEKS)
     Route: 030
     Dates: start: 20170907

REACTIONS (15)
  - Flushing [Unknown]
  - Muscle spasms [Unknown]
  - Dysphonia [Unknown]
  - Papule [Not Recovered/Not Resolved]
  - Mass [Recovering/Resolving]
  - Rash [Unknown]
  - Thyroid hormones increased [Unknown]
  - Spinal pain [Unknown]
  - Blood pressure increased [Not Recovered/Not Resolved]
  - Urticaria [Not Recovered/Not Resolved]
  - Pruritus [Unknown]
  - Injection site mass [Recovering/Resolving]
  - Body temperature decreased [Unknown]
  - Dyspnoea exertional [Unknown]
  - Heart rate decreased [Unknown]

NARRATIVE: CASE EVENT DATE: 20170629
